FAERS Safety Report 16947727 (Version 1)
Quarter: 2019Q4

REPORT INFORMATION
  Report Type: Spontaneous
  Country: US (occurrence: US)
  Receive Date: 20191022
  Receipt Date: 20191022
  Transmission Date: 20200122
  Serious: Yes (Hospitalization)
  Sender: FDA-Public Use
  Company Number: US-BEH-2019108406

PATIENT
  Age: 61 Year
  Sex: Female

DRUGS (1)
  1. HIZENTRA [Suspect]
     Active Substance: HUMAN IMMUNOGLOBULIN G
     Indication: SELECTIVE IGG SUBCLASS DEFICIENCY
     Dosage: UNK
     Route: 058
     Dates: start: 201906

REACTIONS (6)
  - Respiratory syncytial virus infection [Unknown]
  - Septic shock [Unknown]
  - Pulmonary sepsis [Unknown]
  - Back disorder [Unknown]
  - Pneumonia [Unknown]
  - Pruritus [Unknown]

NARRATIVE: CASE EVENT DATE: 2019
